FAERS Safety Report 23208584 (Version 1)
Quarter: 2023Q4

REPORT INFORMATION
  Report Type: Spontaneous
  Country: US (occurrence: US)
  Receive Date: 20231121
  Receipt Date: 20231121
  Transmission Date: 20240109
  Serious: Yes (Other)
  Sender: FDA-Public Use
  Company Number: US-ENDO-CASE-0044286

PATIENT
  Sex: Male

DRUGS (1)
  1. RANITIDINE HYDROCHLORIDE [Suspect]
     Active Substance: RANITIDINE HYDROCHLORIDE

REACTIONS (19)
  - Attention deficit hyperactivity disorder [Unknown]
  - Depression [Unknown]
  - Intentional self-injury [Unknown]
  - Bipolar disorder [Unknown]
  - Impulse-control disorder [Unknown]
  - Bronchitis [Unknown]
  - Asthma [Unknown]
  - Gastrooesophageal reflux disease [Unknown]
  - Irritable bowel syndrome [Unknown]
  - Vomiting [Unknown]
  - Abdominal pain [Unknown]
  - Haematochezia [Unknown]
  - Haematemesis [Unknown]
  - Nausea [Unknown]
  - Dizziness [Unknown]
  - Headache [Unknown]
  - Palpitations [Unknown]
  - Tachycardia [Unknown]
  - Oedema peripheral [Unknown]
